FAERS Safety Report 11640287 (Version 1)
Quarter: 2015Q4

REPORT INFORMATION
  Report Type: Spontaneous
  Country: US (occurrence: None)
  Receive Date: 20151016
  Receipt Date: 20151016
  Transmission Date: 20160304
  Serious: Yes (Disabling)
  Sender: FDA-Public Use
  Company Number: None

PATIENT
  Age: 53 Year
  Sex: Male
  Weight: 95.26 kg

DRUGS (12)
  1. METFORMIN [Concomitant]
     Active Substance: METFORMIN HYDROCHLORIDE
  2. DULERA [Concomitant]
     Active Substance: FORMOTEROL FUMARATE DIHYDRATE\MOMETASONE FUROATE
  3. TAMSULOSIN [Concomitant]
     Active Substance: TAMSULOSIN
  4. LEVOTHYROXINE. [Concomitant]
     Active Substance: LEVOTHYROXINE
  5. LISINOPRIL. [Concomitant]
     Active Substance: LISINOPRIL
  6. CHLORPHENIRAMINE. [Suspect]
     Active Substance: CHLORPHENIRAMINE
     Indication: ASTHMA
  7. KELP [Concomitant]
     Active Substance: KELP
  8. VITAMIN C (WITH ROSEHIPS) [Concomitant]
  9. CHLORPHENIRAMINE. [Suspect]
     Active Substance: CHLORPHENIRAMINE
     Indication: HYPERSENSITIVITY
  10. FLUNISOLIDE. [Concomitant]
     Active Substance: FLUNISOLIDE
  11. MIRTAZAPINE. [Concomitant]
     Active Substance: MIRTAZAPINE
  12. SIMVASTATIN. [Concomitant]
     Active Substance: SIMVASTATIN

REACTIONS (3)
  - Bladder pain [None]
  - Dysuria [None]
  - Cystitis interstitial [None]

NARRATIVE: CASE EVENT DATE: 20151015
